FAERS Safety Report 23146851 (Version 1)
Quarter: 2023Q4

REPORT INFORMATION
  Report Type: Spontaneous
  Country: BR (occurrence: BR)
  Receive Date: 20231105
  Receipt Date: 20231105
  Transmission Date: 20240109
  Serious: No
  Sender: FDA-Public Use
  Company Number: BR-SCALL-2023-BR-079247

PATIENT
  Age: 45 Year
  Sex: Male

DRUGS (1)
  1. DUTASTERIDE [Suspect]
     Active Substance: DUTASTERIDE
     Route: 065

REACTIONS (3)
  - Therapy interrupted [Unknown]
  - Poor quality product administered [Unknown]
  - Product complaint [Unknown]
